FAERS Safety Report 5407530-4 (Version None)
Quarter: 2007Q3

REPORT INFORMATION
  Report Type: 
  Country: None (occurrence: None)
  Receive Date: 20070807
  Receipt Date: 20070801
  Transmission Date: 20080115
  Serious: Yes (Other)
  Sender: FDA-Public Use
  Company Number: US-PFIZER INC-2007063807

PATIENT
  Sex: Male
  Weight: 72.727 kg

DRUGS (11)
  1. GEODON [Suspect]
     Indication: DEMENTIA
  2. GEODON [Suspect]
     Indication: PSYCHOTIC DISORDER
  3. PENTOXIFYLLINE [Concomitant]
  4. FLOMAX ^CSL^ [Concomitant]
  5. ARICEPT [Concomitant]
  6. ZETIA [Concomitant]
  7. NAMENDA [Concomitant]
  8. COSOPT [Concomitant]
  9. NORVASC [Concomitant]
  10. ASPIRIN [Concomitant]
  11. VITAMIN CAP [Concomitant]

REACTIONS (2)
  - FEELING ABNORMAL [None]
  - MEMORY IMPAIRMENT [None]
